FAERS Safety Report 7334478-0 (Version None)
Quarter: 2011Q1

REPORT INFORMATION
  Report Type: 
  Country: None (occurrence: None)
  Receive Date: 20110307
  Receipt Date: 20110301
  Transmission Date: 20110831
  Serious: Yes (Other)
  Sender: FDA-Public Use
  Company Number: US-PFIZER INC-2011045907

PATIENT
  Sex: Female

DRUGS (2)
  1. HYDROCHLOROTHIAZIDE [Interacting]
  2. ALPRAZOLAM [Suspect]
     Dosage: UNK

REACTIONS (6)
  - PRODUCT SUBSTITUTION ISSUE [None]
  - LIMB DISCOMFORT [None]
  - FEELING ABNORMAL [None]
  - DRUG INTERACTION [None]
  - HEART RATE INCREASED [None]
  - BLOOD PRESSURE INCREASED [None]
